FAERS Safety Report 17825876 (Version 1)
Quarter: 2020Q2

REPORT INFORMATION
  Report Type: Spontaneous
  Country: CN (occurrence: CN)
  Receive Date: 20200526
  Receipt Date: 20200526
  Transmission Date: 20200714
  Serious: Yes (Hospitalization, Other)
  Sender: FDA-Public Use
  Company Number: CN-PFIZER INC-2020205065

PATIENT
  Age: 82 Year
  Sex: Female
  Weight: 65 kg

DRUGS (4)
  1. CELEBREX [Suspect]
     Active Substance: CELECOXIB
     Indication: ANALGESIC THERAPY
     Dosage: 0.2 G, 2X/DAY
     Route: 048
     Dates: start: 20200510, end: 20200511
  2. JIN GU LIAN JIAO NANG [Concomitant]
     Active Substance: HERBALS
     Indication: INTERVERTEBRAL DISC PROTRUSION
     Dosage: 0.5 G, 3X/DAY
     Route: 048
     Dates: start: 20200509, end: 20200512
  3. JIN GU LIAN JIAO NANG [Concomitant]
     Active Substance: HERBALS
     Indication: ANALGESIC THERAPY
  4. CELEBREX [Suspect]
     Active Substance: CELECOXIB
     Indication: INTERVERTEBRAL DISC PROTRUSION
     Dosage: 0.4 G, SINGLE
     Route: 048
     Dates: start: 20200509, end: 20200509

REACTIONS (4)
  - Hyperhidrosis [Recovering/Resolving]
  - Heart rate increased [Recovering/Resolving]
  - Vomiting [Recovering/Resolving]
  - Nausea [Recovering/Resolving]

NARRATIVE: CASE EVENT DATE: 20200509
